FAERS Safety Report 8346907-4 (Version None)
Quarter: 2012Q2

REPORT INFORMATION
  Report Type: 
  Country: None (occurrence: None)
  Receive Date: 20120507
  Receipt Date: 20120507
  Transmission Date: 20120825
  Serious: Yes (Hospitalization)
  Sender: FDA-Public Use
  Company Number: None

PATIENT
  Age: 80 Year
  Sex: Male

DRUGS (2)
  1. LISINOPRIL [Suspect]
     Indication: HYPERTENSION
     Dosage: 20 MG EVERY DAY PO
     Route: 048
     Dates: start: 20081212, end: 20120407
  2. AZITHROMYCIN [Suspect]
     Dosage: 500 MG EVERY DAY PO
     Route: 048
     Dates: start: 20120330, end: 20120407

REACTIONS (2)
  - ANGIOEDEMA [None]
  - MYCOBACTERIUM KANSASII INFECTION [None]
